FAERS Safety Report 11423462 (Version 2)
Quarter: 2015Q3

REPORT INFORMATION
  Report Type: Spontaneous
  Country: IT (occurrence: IT)
  Receive Date: 20150827
  Receipt Date: 20150827
  Transmission Date: 20151125
  Serious: Yes (Hospitalization)
  Sender: FDA-Public Use
  Company Number: IT-SA-2015SA126533

PATIENT
  Age: 75 Year
  Sex: Female

DRUGS (10)
  1. LOSARTAN. [Suspect]
     Active Substance: LOSARTAN
     Route: 048
  2. OMEPRAZOLE. [Concomitant]
     Active Substance: OMEPRAZOLE
     Route: 048
  3. ORAMORPH [Concomitant]
     Active Substance: MORPHINE SULFATE
     Route: 065
  4. NOVONORM [Concomitant]
     Active Substance: REPAGLINIDE
     Indication: TYPE 2 DIABETES MELLITUS
     Route: 048
  5. SEQUACOR [Concomitant]
     Active Substance: BISOPROLOL
     Route: 048
  6. KANRENOL [Suspect]
     Active Substance: CANRENOATE POTASSIUM
     Route: 048
  7. NOVONORM [Concomitant]
     Active Substance: REPAGLINIDE
     Indication: TYPE 2 DIABETES MELLITUS
     Route: 048
  8. CARDIOASPIRIN [Concomitant]
     Active Substance: ASPIRIN
     Route: 048
  9. LANTUS [Concomitant]
     Active Substance: INSULIN GLARGINE
     Indication: TYPE 2 DIABETES MELLITUS
     Dosage: DOSE:10 UNIT(S)
     Route: 058
  10. LASIX [Suspect]
     Active Substance: FUROSEMIDE
     Route: 048

REACTIONS (4)
  - Atrial flutter [Recovering/Resolving]
  - Hyperkalaemia [Recovering/Resolving]
  - Dehydration [Recovering/Resolving]
  - Dyspnoea [Unknown]

NARRATIVE: CASE EVENT DATE: 20150703
